FAERS Safety Report 5451551-2 (Version None)
Quarter: 2007Q3

REPORT INFORMATION
  Report Type: 
  Country: None (occurrence: None)
  Receive Date: 20070913
  Receipt Date: 20070717
  Transmission Date: 20080115
  Serious: Yes (Other)
  Sender: FDA-Public Use
  Company Number: US-PURDUE-USA_2007_0028520

PATIENT
  Sex: Male

DRUGS (1)
  1. OXYCONTIN [Suspect]
     Indication: PAIN
     Dosage: UNK MG, SEE TEXT
     Dates: start: 19980903, end: 20010420

REACTIONS (8)
  - AMNESIA [None]
  - DEPRESSION [None]
  - DRUG DEPENDENCE [None]
  - DRUG EFFECT INCREASED [None]
  - FEELING ABNORMAL [None]
  - LIMB TRAUMATIC AMPUTATION [None]
  - MENTAL DISORDER [None]
  - OVERDOSE [None]
